FAERS Safety Report 7265589-6 (Version None)
Quarter: 2011Q1

REPORT INFORMATION
  Report Type: 
  Country: None (occurrence: None)
  Receive Date: 20110131
  Receipt Date: 20101217
  Transmission Date: 20110831
  Serious: Yes (Other)
  Sender: FDA-Public Use
  Company Number: US-BAYER-201018636NA

PATIENT
  Sex: Female
  Weight: 72.562 kg

DRUGS (8)
  1. ASCORBIC ACID [Concomitant]
  2. DIURETICS [Concomitant]
  3. OCELLA [Suspect]
     Indication: DYSMENORRHOEA
     Dosage: UNK
     Route: 048
     Dates: start: 20080101, end: 20090101
  4. ALBUTEROL [Concomitant]
  5. YASMIN [Suspect]
     Indication: DYSMENORRHOEA
     Dosage: UNK
     Route: 048
     Dates: start: 20031103, end: 20080901
  6. POTASSIUM [POTASSIUM] [Concomitant]
  7. YASMIN [Suspect]
     Route: 048
     Dates: start: 20090101
  8. LIPITOR [Concomitant]

REACTIONS (2)
  - CONVULSION [None]
  - GALLBLADDER CHOLESTEROLOSIS [None]
